FAERS Safety Report 6258797-4 (Version None)
Quarter: 2009Q3

REPORT INFORMATION
  Report Type: 
  Country: None (occurrence: None)
  Receive Date: 20090707
  Receipt Date: 20090701
  Transmission Date: 20100115
  Serious: Yes (Disabling, Other)
  Sender: FDA-Public Use
  Company Number: GB-MERCK-0906GBR00130

PATIENT
  Age: 42 Year
  Sex: Male
  Weight: 75 kg

DRUGS (6)
  1. JANUVIA [Suspect]
     Indication: DIABETES MELLITUS
     Route: 048
     Dates: start: 20090305, end: 20090519
  2. ACETAMINOPHEN AND CODEINE PHOSPHATE [Concomitant]
     Route: 065
  3. METFORMIN [Concomitant]
     Indication: DIABETES MELLITUS
     Route: 048
     Dates: start: 20060116
  4. RAMIPRIL [Concomitant]
     Indication: BLOOD PRESSURE INCREASED
     Route: 048
     Dates: start: 20071213
  5. RANITIDINE [Concomitant]
     Route: 065
     Dates: start: 20090305
  6. GABAPENTIN [Concomitant]
     Indication: PAIN
     Route: 048
     Dates: start: 20050520

REACTIONS (4)
  - DYSPEPSIA [None]
  - FEELING ABNORMAL [None]
  - PALPITATIONS [None]
  - THROAT TIGHTNESS [None]
